FAERS Safety Report 8520559-2 (Version None)
Quarter: 2012Q3

REPORT INFORMATION
  Report Type: 
  Country: None (occurrence: None)
  Receive Date: 20120719
  Receipt Date: 20120711
  Transmission Date: 20120928
  Serious: Yes (Hospitalization)
  Sender: FDA-Public Use
  Company Number: ZA-NOVOPROD-355801

PATIENT
  Sex: Male
  Weight: 2.65 kg

DRUGS (3)
  1. PREGNAVIT                          /02369201/ [Concomitant]
     Dosage: UNK
     Dates: start: 20111224
  2. NOVORAPID FLEXPEN [Suspect]
     Indication: GESTATIONAL DIABETES
     Dosage: 12 U, QD
     Route: 064
     Dates: start: 20120411, end: 20120711
  3. OMEGA                              /00661201/ [Concomitant]
     Dosage: UNK
     Dates: start: 20120301

REACTIONS (2)
  - PREMATURE BABY [None]
  - FOETAL EXPOSURE DURING PREGNANCY [None]
